FAERS Safety Report 5094246-X (Version None)
Quarter: 2006Q3

REPORT INFORMATION
  Report Type: 
  Country: None (occurrence: None)
  Receive Date: 20060831
  Receipt Date: 20060829
  Transmission Date: 20061208
  Serious: Yes (Other)
  Sender: FDA-Public Use
  Company Number: US-GLAXOSMITHKLINE-A0618482A

PATIENT
  Sex: Female

DRUGS (2)
  1. VALTREX [Suspect]
     Dosage: 500MG TWICE PER DAY
     Route: 048
  2. TYLENOL [Concomitant]

REACTIONS (4)
  - ERYTHEMA MULTIFORME [None]
  - NERVOUSNESS [None]
  - OCULAR NEOPLASM [None]
  - SUICIDAL IDEATION [None]
